FAERS Safety Report 9238566 (Version 1)
Quarter: 2013Q2

REPORT INFORMATION
  Report Type: Spontaneous
  Country: US (occurrence: None)
  Receive Date: 20130416
  Receipt Date: 20130416
  Transmission Date: 20140414
  Serious: Yes (Hospitalization)
  Sender: FDA-Public Use
  Company Number: 1670033

PATIENT
  Age: 38 Year
  Sex: Female

DRUGS (9)
  1. MIDAZOLAM [Suspect]
     Indication: ALCOHOL WITHDRAWAL SYNDROME
     Route: 041
  2. LORAZEPAM [Suspect]
     Indication: ALCOHOL WITHDRAWAL SYNDROME
     Route: 042
  3. LORAZEPAM [Suspect]
     Indication: ALCOHOL WITHDRAWAL SYNDROME
     Route: 042
  4. LORAZEPAM [Suspect]
     Route: 042
  5. LORAZEPAM [Suspect]
     Indication: ALCOHOL WITHDRAWAL SYNDROME
     Route: 048
  6. PROPOFOL [Concomitant]
     Route: 041
  7. CLONIDINE [Concomitant]
  8. HALOPERIDOL [Concomitant]
  9. PHENOBARBITAL [Concomitant]

REACTIONS (2)
  - Delirium [None]
  - Agitation [None]
